FAERS Safety Report 8180166-0 (Version None)
Quarter: 2012Q1

REPORT INFORMATION
  Report Type: 
  Country: None (occurrence: None)
  Receive Date: 20120229
  Receipt Date: 20120223
  Transmission Date: 20120608
  Serious: Yes (Hospitalization)
  Sender: FDA-Public Use
  Company Number: 2012MA002520

PATIENT
  Age: 89 Year
  Sex: Female

DRUGS (4)
  1. ROSUVASTATIN [Concomitant]
  2. GLICLAZIDE [Concomitant]
  3. METFORMIN HYDROCHLORIDE [Suspect]
     Indication: PRODUCT USED FOR UNKNOWN INDICATION
     Dosage: PO
     Route: 048
     Dates: end: 20120105
  4. ACETYLSALICYLIC ACID SRT [Concomitant]

REACTIONS (4)
  - BLOOD CREATINE INCREASED [None]
  - HAEMATEMESIS [None]
  - BLOOD PH DECREASED [None]
  - GLOMERULAR FILTRATION RATE DECREASED [None]
